FAERS Safety Report 14525803 (Version 1)
Quarter: 2018Q1

REPORT INFORMATION
  Report Type: Spontaneous
  Country: US (occurrence: US)
  Receive Date: 20180211
  Receipt Date: 20180211
  Transmission Date: 20180509
  Serious: Yes (Hospitalization)
  Sender: FDA-Public Use
  Company Number: None

PATIENT
  Sex: Female
  Weight: 85.5 kg

DRUGS (6)
  1. IBUPROFEN. [Concomitant]
     Active Substance: IBUPROFEN
  2. BUPROPION. [Concomitant]
     Active Substance: BUPROPION
  3. BACLOFEN. [Concomitant]
     Active Substance: BACLOFEN
  4. TYLENOL [Concomitant]
     Active Substance: ACETAMINOPHEN
  5. FLUOXETINE [Suspect]
     Active Substance: FLUOXETINE HYDROCHLORIDE
     Indication: DEPRESSION
     Route: 048
     Dates: start: 20121101, end: 20160501
  6. SAVELLA [Concomitant]
     Active Substance: MILNACIPRAN HYDROCHLORIDE

REACTIONS (5)
  - Dysarthria [None]
  - Hemiplegic migraine [None]
  - Cognitive disorder [None]
  - Hemiparesis [None]
  - Facial paralysis [None]

NARRATIVE: CASE EVENT DATE: 20131220
